FAERS Safety Report 4824572-8 (Version None)
Quarter: 2005Q4

REPORT INFORMATION
  Report Type: 
  Country: None (occurrence: None)
  Receive Date: 20051108
  Receipt Date: 20051028
  Transmission Date: 20060501
  Serious: Yes (Death)
  Sender: FDA-Public Use
  Company Number: GBS050918501

PATIENT
  Age: 53 Year
  Sex: Male

DRUGS (12)
  1. CYMBALTA [Suspect]
     Indication: DEPRESSION
     Dosage: 60 MG / 1 DAY
     Dates: start: 20050601
  2. RISPERIDONE [Concomitant]
  3. TEMAZEPAM [Concomitant]
  4. DIAZEPAM [Concomitant]
  5. ATORVASTATIN CALCIUM [Concomitant]
  6. LANSOPRAZOLE [Concomitant]
  7. SERETIDE [Concomitant]
  8. SALBUTAMOL [Concomitant]
  9. VITAMIN B COMPLEX CAP [Concomitant]
  10. THIAMINE [Concomitant]
  11. NAFTIDROFURYL  OXALATE [Concomitant]
  12. ASPIRIN [Concomitant]

REACTIONS (2)
  - CIRCUMSTANCE OR INFORMATION CAPABLE OF LEADING TO MEDICATION ERROR [None]
  - COMPLETED SUICIDE [None]
